FAERS Safety Report 23181262 (Version 1)
Quarter: 2023Q4

REPORT INFORMATION
  Report Type: Spontaneous
  Country: US (occurrence: None)
  Receive Date: 20231110
  Receipt Date: 20231110
  Transmission Date: 20240109
  Serious: Yes (Congenital Anomaly, Other)
  Sender: FDA-Public Use
  Company Number: None

PATIENT
  Age: 8 Week
  Sex: Male
  Weight: 2.4 kg

DRUGS (7)
  1. GABAPENTIN [Suspect]
     Active Substance: GABAPENTIN
  2. CYCLOBENZAPRINE [Suspect]
     Active Substance: CYCLOBENZAPRINE
  3. ZONISAMIDE [Suspect]
     Active Substance: ZONISAMIDE
  4. AMOXICILLIN [Suspect]
     Active Substance: AMOXICILLIN
  5. METHYLPREDNISOLONE [Suspect]
     Active Substance: METHYLPREDNISOLONE
  6. RANITIDINE [Suspect]
     Active Substance: RANITIDINE
  7. LURASIDONE [Suspect]
     Active Substance: LURASIDONE

REACTIONS (9)
  - Inguinal hernia [None]
  - Penis disorder [None]
  - Penoscrotal fusion [None]
  - Phimosis [None]
  - Cardiac dysfunction [None]
  - Foetal cardiac disorder [None]
  - Poor feeding infant [None]
  - Hypotonia neonatal [None]
  - Congenital torticollis [None]

NARRATIVE: CASE EVENT DATE: 20190317
